FAERS Safety Report 6933909-5 (Version None)
Quarter: 2010Q3

REPORT INFORMATION
  Report Type: 
  Country: None (occurrence: None)
  Receive Date: 20100820
  Receipt Date: 20100811
  Transmission Date: 20110219
  Serious: Yes (Disabling)
  Sender: FDA-Public Use
  Company Number: US-ROCHE-719887

PATIENT
  Sex: Female
  Weight: 73.5 kg

DRUGS (10)
  1. BEVACIZUMAB [Suspect]
     Dosage: FORM, VIALS, DATE OF LAST DOSE PRIOR TO SAE:11 MAR 2010 TOTAL DOSE: 1099.5
     Route: 042
     Dates: start: 20100218, end: 20100716
  2. TRASTUZUMAB [Suspect]
     Dosage: FORM:VIALS, DOSE LEVEL:8-6MG, TOTAL DOSE:586-439.8MG,LAST DOSE PRIOR TO SAE:11 MAR 2010
     Route: 042
     Dates: start: 20100218, end: 20100716
  3. CARBOPLATIN [Suspect]
     Dosage: FORM: VIALS, DOSE LEVEL 6AUC, TOTAL DOSE 595-850 MG, LAST DOSE PRIOR TO SAE:11 MAR 2010
     Route: 042
     Dates: start: 20100218
  4. DOCETAXEL [Suspect]
     Dosage: FORM:VIALS, TOTAL DOSE 135 MG, LAST DOSE PRIOR TO SAE: 11 MAR 2010
     Route: 042
     Dates: start: 20100218
  5. CELEXA [Suspect]
     Indication: PRODUCT USED FOR UNKNOWN INDICATION
     Route: 065
     Dates: start: 20100325, end: 20100512
  6. CELEXA [Suspect]
     Route: 065
     Dates: start: 20100513, end: 20100629
  7. CELEXA [Suspect]
     Route: 065
     Dates: start: 20100630, end: 20100707
  8. ATIVAN [Concomitant]
     Dates: start: 20100204
  9. PRILOSEC [Concomitant]
     Dates: start: 20100308
  10. ZANTAC [Concomitant]
     Dates: start: 20100223, end: 20100308

REACTIONS (2)
  - COUGH [None]
  - DYSPHONIA [None]
